FAERS Safety Report 24111753 (Version 1)
Quarter: 2024Q3

REPORT INFORMATION
  Report Type: Spontaneous
  Country: US (occurrence: US)
  Receive Date: 20240718
  Receipt Date: 20240718
  Transmission Date: 20241017
  Serious: No
  Sender: MERCK
  Company Number: US-009507513-2406USA009549

PATIENT
  Age: 14 Year

DRUGS (2)
  1. BRIDION [Suspect]
     Active Substance: SUGAMMADEX
     Indication: Neuromuscular blockade reversal
     Dosage: 3.76 MILLIGRAM/KILOGRAM, ONCE
  2. ROCURONIUM [Concomitant]
     Active Substance: ROCURONIUM BROMIDE
     Dosage: TOTAL INTRAOPERATIVE: 0.37 MG/KG/HR

REACTIONS (1)
  - Off label use [Unknown]
